FAERS Safety Report 16199181 (Version 5)
Quarter: 2021Q3

REPORT INFORMATION
  Report Type: Report from Study
  Country: BR (occurrence: BR)
  Receive Date: 20190415
  Receipt Date: 20210928
  Transmission Date: 20211014
  Serious: Yes (Death, Hospitalization, Other)
  Sender: FDA-Public Use
  Company Number: BR-TAKEDA-2019TUS017526

PATIENT
  Age: 57 Year
  Sex: Male

DRUGS (7)
  1. BACTRIM [Concomitant]
     Active Substance: SULFAMETHOXAZOLE\TRIMETHOPRIM
     Dosage: UNK
     Route: 065
  2. ACYCLOVIR. [Concomitant]
     Active Substance: ACYCLOVIR
     Dosage: UNK
     Route: 065
  3. DEXAMETHASONE. [Suspect]
     Active Substance: DEXAMETHASONE
     Indication: PLASMA CELL MYELOMA
     Dosage: UNK
     Route: 065
  4. IXAZOMIB [Suspect]
     Active Substance: IXAZOMIB
     Indication: PLASMA CELL MYELOMA
     Dosage: 4 MILLIGRAM
     Route: 048
     Dates: start: 20190308
  5. OMEPRAZOLE. [Concomitant]
     Active Substance: OMEPRAZOLE
     Dosage: UNK
     Route: 065
  6. AAS [Concomitant]
     Active Substance: ASPIRIN
     Dosage: UNK
     Route: 065
  7. REVLIMID [Concomitant]
     Active Substance: LENALIDOMIDE
     Dosage: UNK
     Route: 065

REACTIONS (11)
  - Pneumonia [Recovered/Resolved]
  - Fatigue [Unknown]
  - Influenza [Unknown]
  - Asthenia [Unknown]
  - Sinusitis [Unknown]
  - Malaise [Unknown]
  - Abdominal pain [Recovered/Resolved]
  - Somnolence [Unknown]
  - Diarrhoea [Recovered/Resolved]
  - Plasma cell myeloma [Fatal]
  - Headache [Unknown]

NARRATIVE: CASE EVENT DATE: 20190309
